FAERS Safety Report 24458240 (Version 2)
Quarter: 2025Q2

REPORT INFORMATION
  Report Type: Report from Study
  Country: US (occurrence: US)
  Receive Date: 20241018
  Receipt Date: 20250630
  Transmission Date: 20250717
  Serious: Yes (Other)
  Sender: ABBVIE
  Company Number: US-ABBVIE-5966644

PATIENT
  Age: 60 Year
  Sex: Female

DRUGS (2)
  1. SKYRIZI [Suspect]
     Active Substance: RISANKIZUMAB-RZAA
     Indication: Psoriasis
     Route: 058
     Dates: start: 202310, end: 202401
  2. SKYRIZI [Suspect]
     Active Substance: RISANKIZUMAB-RZAA
     Dosage: DOSAGE: 150 MG/ML FORM STRENGTH:150MG/ML, LAST ADMIN DATE:2025
     Route: 058
     Dates: start: 202502

REACTIONS (5)
  - Surgery [Recovered/Resolved]
  - Medical device implantation [Recovering/Resolving]
  - Pneumonia [Recovering/Resolving]
  - Surgery [Recovering/Resolving]
  - Mammogram abnormal [Unknown]

NARRATIVE: CASE EVENT DATE: 20240101
